FAERS Safety Report 6542276-0 (Version None)
Quarter: 2010Q1

REPORT INFORMATION
  Report Type: 
  Country: None (occurrence: None)
  Receive Date: 20100114
  Receipt Date: 20100114
  Transmission Date: 20100710
  Serious: Yes (Hospitalization)
  Sender: FDA-Public Use
  Company Number: None

PATIENT
  Age: 48 Year
  Sex: Female
  Weight: 41.7309 kg

DRUGS (10)
  1. IXABEPILONE [Suspect]
  2. SUNITINIB [Suspect]
  3. NORVASC [Concomitant]
  4. HYDROCHLOROTHLAZIDE [Concomitant]
  5. PERCOCET [Concomitant]
  6. PROPRANOLOL [Concomitant]
  7. MARINOL [Concomitant]
  8. TEMODAR [Concomitant]
  9. LOVENOX [Concomitant]
  10. FENTANYL [Concomitant]

REACTIONS (3)
  - ABDOMINAL PAIN [None]
  - ANAEMIA [None]
  - TUMOUR ASSOCIATED FEVER [None]
